FAERS Safety Report 6975651-0 (Version None)
Quarter: 2010Q3

REPORT INFORMATION
  Report Type: 
  Country: None (occurrence: None)
  Receive Date: 20100910
  Receipt Date: 20090401
  Transmission Date: 20110219
  Serious: No
  Sender: FDA-Public Use
  Company Number: US-WYE-H08793209

PATIENT
  Sex: Female
  Weight: 66.74 kg

DRUGS (6)
  1. PRISTIQ [Suspect]
     Indication: DEPRESSION
     Route: 048
     Dates: start: 20080401, end: 20090301
  2. PRISTIQ [Suspect]
     Indication: BIPOLAR DISORDER
     Route: 048
     Dates: start: 20090301
  3. BISOPROLOL FUMARATE AND HYDROCHLOROTHIAZIDE [Concomitant]
  4. NORTRIPTYLINE HCL [Concomitant]
  5. PRILOSEC [Concomitant]
  6. OXYCONTIN [Concomitant]

REACTIONS (2)
  - DRUG EFFECT DECREASED [None]
  - MYALGIA [None]
